FAERS Safety Report 22262253 (Version 2)
Quarter: 2023Q2

REPORT INFORMATION
  Report Type: Report from Study
  Country: SE (occurrence: SE)
  Receive Date: 20230428
  Receipt Date: 20230502
  Transmission Date: 20230722
  Serious: Yes (Hospitalization)
  Sender: FDA-Public Use
  Company Number: SE-ABBVIE-4742512

PATIENT
  Sex: Male

DRUGS (2)
  1. CARBIDOPA\LEVODOPA [Suspect]
     Active Substance: CARBIDOPA\LEVODOPA
     Indication: Parkinson^s disease
     Dosage: THERAPY DURATION: REMAINS AT 16H.
     Route: 050
     Dates: start: 20220117
  2. CARBIDOPA\LEVODOPA [Suspect]
     Active Substance: CARBIDOPA\LEVODOPA
     Dosage: MORNING DOSE DECREASED TO 14 ML, CONTINUOUS DOSE DECREASED TO 7.7 ML, EXTRA DOSE DECREASED TO 3ML.
     Route: 050
     Dates: start: 20230425

REACTIONS (4)
  - Dystonia [Not Recovered/Not Resolved]
  - Dystonia [Not Recovered/Not Resolved]
  - Cognitive disorder [Unknown]
  - Communication disorder [Unknown]
